FAERS Safety Report 6254563-4 (Version None)
Quarter: 2009Q3

REPORT INFORMATION
  Report Type: 
  Country: None (occurrence: None)
  Receive Date: 20090702
  Receipt Date: 20090629
  Transmission Date: 20100115
  Serious: Yes (Hospitalization)
  Sender: FDA-Public Use
  Company Number: A0777787A

PATIENT
  Sex: Male

DRUGS (8)
  1. ADVAIR HFA [Suspect]
     Indication: ASTHMA
     Dosage: 1PUFF TWICE PER DAY
     Route: 055
     Dates: start: 20030410
  2. SINGULAIR [Concomitant]
  3. FLONASE [Concomitant]
  4. PREVACID [Concomitant]
  5. REGLAN [Concomitant]
  6. CARAFATE [Concomitant]
  7. TANAFED [Concomitant]
  8. XOPENEX [Concomitant]

REACTIONS (4)
  - ASTHMA [None]
  - BRONCHITIS [None]
  - GROWTH RETARDATION [None]
  - PNEUMONIA [None]
